FAERS Safety Report 9707814 (Version 2)
Quarter: 2014Q2

REPORT INFORMATION
  Report Type: Report from Study
  Country: CZ (occurrence: CZ)
  Receive Date: 20131125
  Receipt Date: 20140520
  Transmission Date: 20141212
  Serious: Yes (Hospitalization)
  Sender: FDA-Public Use
  Company Number: CZ-PFIZER INC-2013333872

PATIENT
  Age: 64 Year
  Sex: Female
  Weight: 64 kg

DRUGS (3)
  1. SUTENT [Suspect]
     Indication: RENAL CELL CARCINOMA
     Dosage: 50 MG, 1X/DAY 4 WEEKS ON, 2 WEEKS OFF
     Route: 048
     Dates: start: 201305
  2. SUTENT [Suspect]
     Dosage: 25 MG, 1X/DAY 4 WEEKS ON, 2 WEEKS OFF
     Route: 048
  3. XGEVA [Concomitant]
     Dosage: 120 MG, MONTHLY
     Dates: start: 2014

REACTIONS (8)
  - Gastrointestinal toxicity [Unknown]
  - Weight decreased [Unknown]
  - Fatigue [Unknown]
  - Abdominal discomfort [Unknown]
  - Nausea [Unknown]
  - Palmar-plantar erythrodysaesthesia syndrome [Unknown]
  - Diarrhoea [Unknown]
  - Decreased appetite [Unknown]
